FAERS Safety Report 7818972-1 (Version None)
Quarter: 2011Q4

REPORT INFORMATION
  Report Type: 
  Country: None (occurrence: None)
  Receive Date: 20111018
  Receipt Date: 20111007
  Transmission Date: 20120403
  Serious: Yes (Hospitalization)
  Sender: FDA-Public Use
  Company Number: US-JNJFOC-20111004259

PATIENT
  Sex: Female

DRUGS (4)
  1. LIALDA [Concomitant]
     Route: 065
  2. SULFASALAZINE [Concomitant]
     Route: 065
  3. ORAL CONTRACEPTIVE [Concomitant]
     Route: 065
  4. REMICADE [Suspect]
     Indication: COLITIS ULCERATIVE
     Route: 042

REACTIONS (1)
  - MESENTERIC VEIN THROMBOSIS [None]
